FAERS Safety Report 8145518-3 (Version None)
Quarter: 2012Q1

REPORT INFORMATION
  Report Type: 
  Country: None (occurrence: None)
  Receive Date: 20120217
  Receipt Date: 20120216
  Transmission Date: 20120608
  Serious: Yes (Other)
  Sender: FDA-Public Use
  Company Number: CH-BAYER-2012-015336

PATIENT
  Age: 84 Year
  Sex: Male
  Weight: 68 kg

DRUGS (4)
  1. ASPIRIN [Suspect]
     Dosage: 100 MG, QD
     Route: 048
     Dates: start: 20010101
  2. IRBESARTAN + HYDROCHLOROTHIAZIDE [Suspect]
     Dosage: 1 DF, QD
     Route: 048
     Dates: start: 20010101
  3. XALATAN [Concomitant]
     Dosage: 1 GTT, QD
     Route: 047
  4. CAMPHOR [Concomitant]
     Dosage: UNK
     Route: 048
     Dates: start: 20111101

REACTIONS (1)
  - DYSGEUSIA [None]
